FAERS Safety Report 24723294 (Version 1)
Quarter: 2024Q4

REPORT INFORMATION
  Report Type: Spontaneous
  Country: FR (occurrence: FR)
  Receive Date: 20241211
  Receipt Date: 20241211
  Transmission Date: 20250115
  Serious: Yes (Hospitalization, Other)
  Sender: PFIZER
  Company Number: None

PATIENT
  Age: 72 Year
  Sex: Male
  Weight: 81 kg

DRUGS (2)
  1. PEMETREXED [Suspect]
     Active Substance: PEMETREXED
     Indication: Lung carcinoma cell type unspecified stage IV
     Dosage: 500 MG/M2, EVERY 3 WEEKS
     Route: 042
     Dates: start: 202312, end: 20240904
  2. KEYTRUDA [Suspect]
     Active Substance: PEMBROLIZUMAB
     Indication: Lung carcinoma cell type unspecified stage IV
     Dosage: 200 MG, EVERY 3 WEEKS
     Route: 042
     Dates: start: 202312, end: 20240904

REACTIONS (1)
  - Heart failure with reduced ejection fraction [Recovered/Resolved]

NARRATIVE: CASE EVENT DATE: 20240724
